FAERS Safety Report 7861517-0 (Version None)
Quarter: 2011Q4

REPORT INFORMATION
  Report Type: 
  Country: None (occurrence: None)
  Receive Date: 20111027
  Receipt Date: 20111017
  Transmission Date: 20120403
  Serious: Yes (Hospitalization, Disabling)
  Sender: FDA-Public Use
  Company Number: NZ-CELGENEUS-118-20785-11033684

PATIENT
  Sex: Female

DRUGS (7)
  1. LAXAL [Concomitant]
     Indication: CONSTIPATION
     Route: 065
     Dates: end: 20110401
  2. FELODIPINE [Concomitant]
     Indication: HYPERTENSION
     Dosage: 2.5 MILLIGRAM
     Route: 065
  3. PREDNISONE [Concomitant]
     Indication: COLITIS
     Route: 065
     Dates: start: 20110301, end: 20110508
  4. BLOOD TRANSFUSION [Concomitant]
     Route: 041
  5. CODEINE SULFATE [Concomitant]
     Indication: PAIN
     Dosage: 30 - 60MG
     Route: 065
  6. THALOMID [Suspect]
     Indication: MULTIPLE MYELOMA
     Route: 048
     Dates: start: 20091222
  7. THALOMID [Suspect]
     Dosage: 50 MILLIGRAM
     Route: 048
     Dates: start: 20100401, end: 20110401

REACTIONS (3)
  - WOUND DEHISCENCE [None]
  - MEMORY IMPAIRMENT [None]
  - COLON CANCER [None]
